FAERS Safety Report 13263765 (Version 2)
Quarter: 2017Q2

REPORT INFORMATION
  Report Type: Spontaneous
  Country: US (occurrence: US)
  Receive Date: 20170223
  Receipt Date: 20170403
  Transmission Date: 20170830
  Serious: No
  Sender: FDA-Public Use
  Company Number: US-PFIZER INC-2017073395

PATIENT
  Sex: Female

DRUGS (1)
  1. XELJANZ XR [Suspect]
     Active Substance: TOFACITINIB CITRATE
     Dosage: 11 MG, UNK
     Dates: start: 201612

REACTIONS (4)
  - Disease progression [Unknown]
  - Synovitis [Unknown]
  - Pre-existing condition improved [Recovering/Resolving]
  - Therapeutic response unexpected [Recovering/Resolving]
